FAERS Safety Report 9127203 (Version 1)
Quarter: 2013Q1

REPORT INFORMATION
  Report Type: Spontaneous
  Country: US (occurrence: US)
  Receive Date: 20130228
  Receipt Date: 20130228
  Transmission Date: 20140127
  Serious: No
  Sender: FDA-Public Use
  Company Number: US-GLAXOSMITHKLINE-A0961469A

PATIENT
  Sex: Male

DRUGS (1)
  1. LAMICTAL [Suspect]
     Indication: PRODUCT USED FOR UNKNOWN INDICATION
     Dosage: 200MG TWICE PER DAY
     Route: 048

REACTIONS (5)
  - Mood altered [Unknown]
  - Memory impairment [Unknown]
  - Confusional state [Unknown]
  - Ill-defined disorder [Unknown]
  - Treatment noncompliance [Unknown]
